FAERS Safety Report 15536379 (Version 1)
Quarter: 2018Q4

REPORT INFORMATION
  Report Type: Spontaneous
  Country: SE (occurrence: SE)
  Receive Date: 20181022
  Receipt Date: 20181022
  Transmission Date: 20190205
  Serious: Yes (Hospitalization)
  Sender: FDA-Public Use
  Company Number: SE-SA-2018SA288317

PATIENT
  Age: 19 Year
  Sex: Female

DRUGS (4)
  1. SERTRALINE [Suspect]
     Active Substance: SERTRALINE HYDROCHLORIDE
     Dosage: UNK UNK, UNK
  2. PAPAVERINE [Suspect]
     Active Substance: PAPAVERINE
     Dosage: UNK UNK, UNK
  3. EGAZIL [Suspect]
     Active Substance: HYOSCYAMINE SULFATE
     Dosage: UNK UNK, UNK
     Route: 065
  4. MELATONIN [Suspect]
     Active Substance: MELATONIN
     Dosage: UNK UNK, UNK

REACTIONS (5)
  - Tachycardia [Recovered/Resolved]
  - Muscle spasms [Recovered/Resolved]
  - Intentional overdose [Unknown]
  - Vision blurred [Recovered/Resolved]
  - Toxicity to various agents [Unknown]

NARRATIVE: CASE EVENT DATE: 20180918
